FAERS Safety Report 8054277-4 (Version None)
Quarter: 2012Q1

REPORT INFORMATION
  Report Type: 
  Country: None (occurrence: None)
  Receive Date: 20120118
  Receipt Date: 20120103
  Transmission Date: 20120608
  Serious: Yes (Other)
  Sender: FDA-Public Use
  Company Number: PHHY2012AU003518

PATIENT
  Sex: Female

DRUGS (1)
  1. ZOLEDRONOC ACID [Suspect]
     Route: 042
     Dates: start: 20111206

REACTIONS (7)
  - RASH [None]
  - INFLUENZA [None]
  - SYNCOPE [None]
  - JOINT SWELLING [None]
  - DIZZINESS [None]
  - DECREASED APPETITE [None]
  - FATIGUE [None]
